FAERS Safety Report 17780217 (Version 1)
Quarter: 2020Q2

REPORT INFORMATION
  Report Type: Spontaneous
  Country: US (occurrence: US)
  Receive Date: 20200514
  Receipt Date: 20200514
  Transmission Date: 20200714
  Serious: No
  Sender: FDA-Public Use
  Company Number: US-ALK-ABELLO A/S-2020AA001241

PATIENT

DRUGS (1)
  1. ODACTRA [Suspect]
     Active Substance: DERMATOPHAGOIDES FARINAE\DERMATOPHAGOIDES PTERONYSSINUS
     Indication: PRODUCT USED FOR UNKNOWN INDICATION
     Dosage: UNK
     Route: 060
     Dates: start: 20190405, end: 20190709

REACTIONS (9)
  - Throat irritation [Recovered/Resolved]
  - Feeling cold [Recovered/Resolved]
  - Anxiety [Recovered/Resolved]
  - Oropharyngeal pain [Recovered/Resolved]
  - Eyelids pruritus [Recovered/Resolved]
  - Pharyngeal swelling [Recovered/Resolved]
  - Pruritus [Recovered/Resolved]
  - Pruritus [Recovered/Resolved]
  - Ear pruritus [Recovered/Resolved]

NARRATIVE: CASE EVENT DATE: 20190405
